FAERS Safety Report 11383833 (Version 1)
Quarter: 2015Q3

REPORT INFORMATION
  Report Type: Spontaneous
  Country: US (occurrence: US)
  Receive Date: 20150814
  Receipt Date: 20150814
  Transmission Date: 20151125
  Serious: Yes (Hospitalization, Other)
  Sender: FDA-Public Use
  Company Number: US-TAKEDA-2015TUS010623

PATIENT
  Sex: Female
  Weight: 46.26 kg

DRUGS (1)
  1. ENTYVIO [Suspect]
     Active Substance: VEDOLIZUMAB
     Indication: COLITIS ULCERATIVE
     Dosage: 300 MG, UNK
     Route: 042
     Dates: start: 20140929, end: 20140929

REACTIONS (16)
  - Clostridium difficile infection [Unknown]
  - Mouth swelling [Unknown]
  - Lip swelling [Unknown]
  - Pruritus [Unknown]
  - Amnesia [Unknown]
  - Insomnia [Unknown]
  - Chills [Unknown]
  - Gastrointestinal infection [Unknown]
  - Neoplasm malignant [Unknown]
  - Anaemia [Unknown]
  - Tremor [Unknown]
  - Colectomy [Unknown]
  - Back pain [Unknown]
  - Loss of consciousness [Unknown]
  - Blister [Unknown]
  - Precancerous skin lesion [Unknown]
